FAERS Safety Report 16443406 (Version 1)
Quarter: 2019Q2

REPORT INFORMATION
  Report Type: Other
  Country: FR (occurrence: FR)
  Receive Date: 20190618
  Receipt Date: 20190618
  Transmission Date: 20190711
  Serious: Yes (Hospitalization)
  Sender: FDA-Public Use
  Company Number: FR-EMCURE PHARMACEUTICALS LTD-2019-EPL-0274

PATIENT
  Age: 46 Year
  Sex: Female
  Weight: 70.4 kg

DRUGS (4)
  1. ALKERAN [Suspect]
     Active Substance: MELPHALAN
     Indication: PLASMA CELL MYELOMA
     Dosage: 140 MILLIGRAM/SQ. METER/DAY
     Route: 042
     Dates: start: 20190505, end: 20190505
  2. CYTARABINE SANDOZ [Suspect]
     Active Substance: CYTARABINE
     Indication: PLASMA CELL MYELOMA
     Dosage: 200 MILLIGRAM/SQ. METER/DAY
     Route: 042
     Dates: start: 20190501, end: 20190504
  3. BICNU [Suspect]
     Active Substance: CARMUSTINE
     Indication: PLASMA CELL MYELOMA
     Dosage: 300 MILLIGRAM/SQ. METER/DAY,POWDER AND SOLVENT FOR SOLUTION FOR INFUSION
     Route: 042
     Dates: start: 20190430, end: 20190430
  4. ETOPOSIDE MYLAN [Suspect]
     Active Substance: ETOPOSIDE
     Indication: PLASMA CELL MYELOMA
     Dosage: 200 MILLIGRAM/SQ. METER/DAY
     Route: 042
     Dates: start: 20190501, end: 20190504

REACTIONS (4)
  - Stomatitis [Recovered/Resolved]
  - Oesophagitis [Recovered/Resolved]
  - Duodenitis [Not Recovered/Not Resolved]
  - Enteritis [Not Recovered/Not Resolved]

NARRATIVE: CASE EVENT DATE: 20190509
